FAERS Safety Report 16803145 (Version 1)
Quarter: 2019Q3

REPORT INFORMATION
  Report Type: Spontaneous
  Country: GB (occurrence: GB)
  Receive Date: 20190913
  Receipt Date: 20190913
  Transmission Date: 20191005
  Serious: Yes (Hospitalization, Other)
  Sender: FDA-Public Use
  Company Number: GB-BIOVITRUM-2019GB2931

PATIENT
  Sex: Female

DRUGS (1)
  1. NITISINONE [Suspect]
     Active Substance: NITISINONE
     Indication: TYROSINAEMIA
     Dosage: 1.3-2.4 MG/KG/D (60-120MG/DAY)

REACTIONS (6)
  - Porphyria [Unknown]
  - Treatment noncompliance [Unknown]
  - Succinylacetone increased [Unknown]
  - Maternal exposure during pregnancy [Recovered/Resolved]
  - Nausea [Unknown]
  - Abdominal distension [Unknown]
